FAERS Safety Report 6866946-X (Version None)
Quarter: 2010Q3

REPORT INFORMATION
  Report Type: 
  Country: None (occurrence: None)
  Receive Date: 20100722
  Receipt Date: 20100712
  Transmission Date: 20110219
  Serious: Yes (Hospitalization)
  Sender: FDA-Public Use
  Company Number: GXKR2010US07679

PATIENT
  Age: 65 Year
  Sex: Female

DRUGS (1)
  1. ALENDRONIC ACID (NGX) [Suspect]
     Dosage: UNK

REACTIONS (5)
  - BACK PAIN [None]
  - INTRAMEDULLARY ROD INSERTION [None]
  - PAIN IN EXTREMITY [None]
  - PATHOLOGICAL FRACTURE [None]
  - PELVIC PAIN [None]
